FAERS Safety Report 9563143 (Version 1)
Quarter: 2013Q3

REPORT INFORMATION
  Report Type: Spontaneous
  Country: US (occurrence: US)
  Receive Date: 20130927
  Receipt Date: 20130927
  Transmission Date: 20140515
  Serious: No
  Sender: FDA-Public Use
  Company Number: US-BRISTOL-MYERS SQUIBB COMPANY-17401258

PATIENT
  Age: 62 Year
  Sex: Female
  Weight: 95.24 kg

DRUGS (5)
  1. ONGLYZA TABS 5 MG [Suspect]
     Indication: TYPE 2 DIABETES MELLITUS
     Dates: start: 201210, end: 20130130
  2. PROVENTIL INHALER [Concomitant]
  3. PRILOSEC [Concomitant]
  4. LOSARTAN [Concomitant]
  5. PROPRANOLOL [Concomitant]

REACTIONS (1)
  - Nausea [Recovered/Resolved]
